FAERS Safety Report 6761524-5 (Version None)
Quarter: 2010Q2

REPORT INFORMATION
  Report Type: 
  Country: None (occurrence: None)
  Receive Date: 20100607
  Receipt Date: 20100525
  Transmission Date: 20101027
  Serious: Yes (Hospitalization)
  Sender: FDA-Public Use
  Company Number: 7005959

PATIENT
  Age: 45 Year
  Sex: Female

DRUGS (5)
  1. REBIF [Suspect]
     Indication: MULTIPLE SCLEROSIS
     Dosage: 44 MCG, 3 IN 1 WK, SUBCUTANEOUS
     Route: 058
     Dates: start: 20031025
  2. STEROIDS (CORTICOSTEROIDS) [Suspect]
  3. VICODIN (VICODIN) [Concomitant]
  4. MORPHINE (MORPHINE) [Concomitant]
  5. PAXIL [Concomitant]

REACTIONS (5)
  - BIPOLAR DISORDER [None]
  - FATIGUE [None]
  - INJECTION SITE ERYTHEMA [None]
  - MYALGIA [None]
  - SINUS CONGESTION [None]
